FAERS Safety Report 6688609-6 (Version None)
Quarter: 2010Q2

REPORT INFORMATION
  Report Type: 
  Country: None (occurrence: None)
  Receive Date: 20100420
  Receipt Date: 20100414
  Transmission Date: 20101027
  Serious: Yes (Hospitalization, Other)
  Sender: FDA-Public Use
  Company Number: TR-ELI_LILLY_AND_COMPANY-TR201003007803

PATIENT
  Age: 40 Year
  Sex: Male

DRUGS (8)
  1. HUMALOG [Suspect]
     Indication: DIABETES MELLITUS
     Dosage: 8 IU, EACH MORNING
     Route: 058
     Dates: start: 20090827
  2. HUMALOG [Suspect]
     Dosage: 8 IU, OTHER
     Route: 058
     Dates: start: 20090827
  3. HUMALOG [Suspect]
     Dosage: 8 IU, EACH EVENING
     Route: 058
     Dates: start: 20090827
  4. LANTUS [Concomitant]
     Indication: DIABETES MELLITUS
     Dosage: 1 IU, DAILY (1/D)
     Route: 058
  5. IRBESARTAN + HYDROCHLOROTHIAZIDE [Concomitant]
     Indication: HYPERTENSION
     Dosage: 300 MG, UNK
  6. METOPROLOL TARTRATE [Concomitant]
     Indication: HYPERTENSION
     Dosage: 50 MG, DAILY (1/D)
  7. DOXAZOSIN [Concomitant]
     Indication: HYPERTENSION
     Dosage: 4 MG, DAILY (1/D)
  8. FENOFIBRATE [Concomitant]
     Indication: DYSLIPIDAEMIA

REACTIONS (4)
  - DEAFNESS [None]
  - DIABETIC NEPHROPATHY [None]
  - HYPERGLYCAEMIA [None]
  - RENAL FAILURE [None]
